FAERS Safety Report 19462181 (Version 1)
Quarter: 2021Q2

REPORT INFORMATION
  Report Type: Spontaneous
  Country: US (occurrence: US)
  Receive Date: 20210625
  Receipt Date: 20210625
  Transmission Date: 20210717
  Serious: Yes (Other)
  Sender: FDA-Public Use
  Company Number: US-TAKEDA-2021TUS037834

PATIENT
  Sex: Female

DRUGS (1)
  1. VYVANSE [Suspect]
     Active Substance: LISDEXAMFETAMINE DIMESYLATE
     Indication: BINGE EATING
     Dosage: 70 MILLIGRAM, QD
     Route: 065

REACTIONS (11)
  - Suicidal ideation [Unknown]
  - Product dose omission issue [Unknown]
  - Arthralgia [Unknown]
  - Insomnia [Unknown]
  - Fatigue [Unknown]
  - Dependence [Unknown]
  - Bedridden [Unknown]
  - Influenza like illness [Unknown]
  - Nausea [Unknown]
  - Eating disorder [Unknown]
  - Crying [Unknown]
